FAERS Safety Report 18971167 (Version 1)
Quarter: 2021Q1

REPORT INFORMATION
  Report Type: Spontaneous
  Country: US (occurrence: US)
  Receive Date: 20210305
  Receipt Date: 20210305
  Transmission Date: 20210420
  Serious: Yes (Hospitalization)
  Sender: FDA-Public Use
  Company Number: US-TEVA-2021-US-1885331

PATIENT
  Age: 81 Year
  Sex: Male

DRUGS (5)
  1. METHYLPREDNISOLONE. [Suspect]
     Active Substance: METHYLPREDNISOLONE
     Indication: MYASTHENIA GRAVIS
     Dosage: 100 MILLIGRAM DAILY; START PERIOD 2 (WEEKS)
     Route: 065
  2. METHYLPREDNISOLONE. [Suspect]
     Active Substance: METHYLPREDNISOLONE
     Dosage: 200 MILLIGRAM DAILY;
     Route: 065
  3. IVIG [Suspect]
     Active Substance: HUMAN IMMUNOGLOBULIN G
     Indication: MYASTHENIA GRAVIS
     Dosage: 2G/KG FOR 5 DAYS
     Route: 042
  4. PEMBROLIZUMAB. [Suspect]
     Active Substance: PEMBROLIZUMAB
     Indication: TRANSITIONAL CELL CARCINOMA
     Dosage: START PERIOD: 2 WEEKS
     Route: 065
  5. PYRIDOSTIGMINE [Suspect]
     Active Substance: PYRIDOSTIGMINE
     Indication: MYASTHENIA GRAVIS
     Dosage: START PERIOD 2 (WEEKS)
     Route: 065

REACTIONS (4)
  - Respiratory failure [Not Recovered/Not Resolved]
  - Hypercapnia [Not Recovered/Not Resolved]
  - Drug ineffective [Unknown]
  - Myasthenia gravis [Not Recovered/Not Resolved]
